FAERS Safety Report 25545842 (Version 1)
Quarter: 2025Q3

REPORT INFORMATION
  Report Type: Spontaneous
  Country: GB (occurrence: GB)
  Receive Date: 20250712
  Receipt Date: 20250712
  Transmission Date: 20251021
  Serious: Yes (Other)
  Sender: ORGANON
  Company Number: GB-MERCK-0902GBR00033

PATIENT
  Age: 57 Year
  Sex: Male
  Weight: 86 kg

DRUGS (1)
  1. SIMVASTATIN [Suspect]
     Active Substance: SIMVASTATIN
     Indication: Type V hyperlipidaemia
     Dosage: 40 MG, QD
     Route: 048
     Dates: start: 2008, end: 20080206

REACTIONS (6)
  - Myopathy [Recovering/Resolving]
  - Dyspnoea [Recovered/Resolved]
  - Fatigue [Recovered/Resolved]
  - Inspiratory capacity decreased [Recovered/Resolved]
  - Respiratory distress [Recovered/Resolved]
  - Malaise [Recovering/Resolving]
